FAERS Safety Report 7551360-4 (Version None)
Quarter: 2011Q2

REPORT INFORMATION
  Report Type: 
  Country: None (occurrence: None)
  Receive Date: 20110616
  Receipt Date: 20110607
  Transmission Date: 20111010
  Serious: Yes (Hospitalization)
  Sender: FDA-Public Use
  Company Number: FR-ROCHE-729469

PATIENT
  Sex: Female
  Weight: 52 kg

DRUGS (43)
  1. PROGRAF [Suspect]
     Route: 048
  2. NOVORAPID [Concomitant]
     Route: 058
     Dates: start: 20100721, end: 20101001
  3. CIPROFLOXACIN [Concomitant]
     Dates: start: 20100628, end: 20100718
  4. EPREX [Concomitant]
     Route: 058
     Dates: start: 20100803
  5. MIRCERA [Concomitant]
     Route: 058
     Dates: start: 20110419
  6. VALACYCLOVIR [Concomitant]
     Route: 048
     Dates: start: 20100706
  7. POTASSIUM CHLORIDE [Concomitant]
     Route: 048
     Dates: start: 20100628, end: 20100930
  8. INSULATARD [Concomitant]
     Dosage: TDD: 20+9 IU
     Dates: start: 20100703, end: 20100806
  9. ASPIRIN [Concomitant]
     Dates: start: 20110412
  10. DUPHALAC [Concomitant]
     Dates: start: 20110501
  11. PIPERACILLIN AND TAZOBACTAM [Concomitant]
     Dates: start: 20110512, end: 20110514
  12. AMLODIPINE [Concomitant]
     Dosage: FREQUENCY REPORTED AS QD.
     Route: 048
     Dates: start: 20100517
  13. AMLODIPINE [Concomitant]
     Route: 048
     Dates: start: 20100706
  14. MAG 2 [Concomitant]
     Dosage: TDD: 2 DOSES
     Dates: start: 20100702
  15. LEXOMIL [Concomitant]
     Route: 048
     Dates: start: 20101002
  16. LASIX [Concomitant]
     Dates: start: 20110409
  17. NOVORAPID [Concomitant]
     Route: 058
     Dates: start: 20110512
  18. VALACYCLOVIR [Concomitant]
     Dosage: TEMPORARILY DISCONTINUED FROM 28 JUN TO 05 JULY 2010
     Route: 048
     Dates: start: 20100521, end: 20100628
  19. XYZAL [Concomitant]
     Route: 048
     Dates: start: 20100915, end: 20100929
  20. MYCOPHENOLATE MEFETIL [Suspect]
     Route: 048
     Dates: start: 20100511
  21. PREDNISONE [Suspect]
     Dosage: LAST DOSE PRIOR TO SAE: 8 SEP 2010
     Route: 048
     Dates: start: 20100518
  22. PRAVASTATIN [Concomitant]
     Dosage: REPORTED AS QD.
     Route: 048
     Dates: start: 20100522
  23. PHOSPHONEUROS [Concomitant]
     Route: 048
     Dates: start: 20100525
  24. PANTOPRAZOLE SODIUM [Concomitant]
     Dosage: REPORTED AS QD.
     Route: 048
     Dates: start: 20100512
  25. BICARBONATE DE SODIUM [Concomitant]
     Route: 048
     Dates: start: 20100712
  26. FORLAX [Concomitant]
     Route: 048
     Dates: start: 20101001
  27. DEBRIDAT [Concomitant]
     Dates: start: 20110404
  28. INSULATARD [Concomitant]
     Route: 058
     Dates: start: 20110512
  29. AMIKACIN [Concomitant]
     Dates: start: 20110512, end: 20110513
  30. OFLOXACIN [Concomitant]
     Dates: start: 20110514
  31. PREDNISONE [Suspect]
     Route: 048
     Dates: start: 20101002
  32. POTASSIUM CHLORIDE [Concomitant]
     Dosage: TDD: 6 DOSES
     Route: 048
     Dates: start: 20100626
  33. PANTOPRAZOLE SODIUM [Concomitant]
     Route: 048
     Dates: start: 20100515
  34. PIPERACILLIN AND TAZOBACTAM [Concomitant]
     Dates: start: 20100628, end: 20100719
  35. NOVOMIX [Concomitant]
     Route: 058
     Dates: start: 20100811, end: 20100906
  36. CERTICAN [Suspect]
     Dosage: ROUTE REPORTED AS PER OS. LAST DOSE PRIOR TO SAE 23 SEP 2010.
     Route: 048
     Dates: start: 20100516
  37. POTASSIUM CHLORIDE [Concomitant]
     Route: 048
     Dates: start: 20110503, end: 20110517
  38. BICARBONATE DE SODIUM [Concomitant]
     Route: 048
     Dates: start: 20100702
  39. NOVORAPID [Concomitant]
     Dosage: TDD: 8+8+8 IU
     Route: 058
     Dates: start: 20100628
  40. NOVORAPID [Concomitant]
     Route: 058
  41. LANTUS [Concomitant]
     Dosage: REPORTED AS QD.
     Route: 058
     Dates: start: 20100907, end: 20101001
  42. LEXOMIL [Concomitant]
     Route: 048
     Dates: start: 20100923
  43. FORLAX [Concomitant]
     Dosage: DRUG REPORTED AS PORLAX QD AS NEEDED.
     Route: 048

REACTIONS (3)
  - TRANSPLANT REJECTION [None]
  - KLEBSIELLA SEPSIS [None]
  - ESCHERICHIA SEPSIS [None]
